FAERS Safety Report 6981821-8 (Version None)
Quarter: 2010Q3

REPORT INFORMATION
  Report Type: 
  Country: None (occurrence: None)
  Receive Date: 20100914
  Receipt Date: 20091120
  Transmission Date: 20110219
  Serious: Yes (Other)
  Sender: FDA-Public Use
  Company Number: US-PFIZER INC-2009259931

PATIENT
  Age: 71 Year
  Sex: Female
  Weight: 77.098 kg

DRUGS (3)
  1. LYRICA [Suspect]
     Indication: FIBROMYALGIA
     Dosage: 50 MG, 1X/DAY
     Route: 048
     Dates: start: 20090309, end: 20090515
  2. ARIMIDEX [Concomitant]
     Indication: BREAST CANCER
     Dosage: 1 MG, 1X/DAY
     Route: 048
     Dates: start: 20080301
  3. THYROID TAB [Concomitant]
     Indication: THYROID DISORDER
     Dosage: 390 MG, 1X/DAY
     Route: 048

REACTIONS (8)
  - ARTHRALGIA [None]
  - ARTHRITIS [None]
  - BURSITIS [None]
  - DIZZINESS [None]
  - FALL [None]
  - GAIT DISTURBANCE [None]
  - SUICIDAL BEHAVIOUR [None]
  - TENDONITIS [None]
